FAERS Safety Report 8908046 (Version 1)
Quarter: 2012Q4

REPORT INFORMATION
  Report Type: 
  Country: US (occurrence: US)
  Receive Date: 20121113
  Receipt Date: 20121113
  Transmission Date: 20130627
  Serious: No
  Sender: FDA-Public Use
  Company Number: US-AMGEN-USASP2012010112

PATIENT
  Age: 54 Year
  Sex: Female
  Weight: 65.76 kg

DRUGS (5)
  1. ENBREL [Suspect]
     Indication: PRODUCT USED FOR UNKNOWN INDICATION
     Dosage: 50 mg, qwk
     Route: 058
  2. METOPROLOL [Concomitant]
     Dosage: 25 mg, UNK
  3. PRILOSEC                           /00661201/ [Concomitant]
     Dosage: 10 mg, UNK
  4. VITAMIN D /00107901/ [Concomitant]
     Dosage: UNK
  5. CALCIUM [Concomitant]
     Dosage: UNK

REACTIONS (2)
  - Cough [Not Recovered/Not Resolved]
  - Pneumonia [Not Recovered/Not Resolved]
